FAERS Safety Report 8075790-X (Version None)
Quarter: 2012Q1

REPORT INFORMATION
  Report Type: 
  Country: None (occurrence: None)
  Receive Date: 20120127
  Receipt Date: 20120116
  Transmission Date: 20120608
  Serious: Yes (Hospitalization, Other)
  Sender: FDA-Public Use
  Company Number: FR-ELI_LILLY_AND_COMPANY-FR201108000948

PATIENT
  Sex: Male
  Weight: 69 kg

DRUGS (3)
  1. PREVISCAN [Concomitant]
     Indication: ATRIAL FIBRILLATION
     Dosage: 1 DF, UNK
     Route: 048
  2. CORTANCYL [Concomitant]
     Dosage: 5 MG, UNK
     Route: 048
  3. FORTEO [Suspect]
     Indication: OSTEOPOROSIS
     Dosage: 20 UG, QD
     Route: 058
     Dates: start: 20100310, end: 20110907

REACTIONS (1)
  - OSTEOARTHRITIS [None]
